FAERS Safety Report 20477760 (Version 1)
Quarter: 2022Q1

REPORT INFORMATION
  Report Type: Spontaneous
  Country: GB (occurrence: GB)
  Receive Date: 20220216
  Receipt Date: 20220216
  Transmission Date: 20220423
  Serious: Yes (Other)
  Sender: FDA-Public Use
  Company Number: None

PATIENT
  Age: 58 Year
  Sex: Male
  Weight: 80 kg

DRUGS (2)
  1. ONDANSETRON [Suspect]
     Active Substance: ONDANSETRON
     Indication: Gastroenteritis viral
     Dosage: 4MG
     Route: 042
     Dates: end: 202201
  2. ONDANSETRON [Suspect]
     Active Substance: ONDANSETRON
     Dosage: DOSE RE-INTRODUCED
     Route: 042
     Dates: start: 202201

REACTIONS (4)
  - Device dislocation [Recovered/Resolved]
  - Abnormal behaviour [Recovering/Resolving]
  - Agitation [Recovered/Resolved]
  - Amnesia [Recovered/Resolved]

NARRATIVE: CASE EVENT DATE: 20220107
